FAERS Safety Report 5603905-9 (Version None)
Quarter: 2008Q1

REPORT INFORMATION
  Report Type: 
  Country: None (occurrence: None)
  Receive Date: 20080123
  Receipt Date: 20080123
  Transmission Date: 20080703
  Serious: Yes (Life-Threatening)
  Sender: FDA-Public Use
  Company Number: None

PATIENT
  Age: 62 Year
  Sex: Female
  Weight: 68.0396 kg

DRUGS (1)
  1. LIPITOR [Suspect]
     Indication: BLOOD CHOLESTEROL INCREASED
     Dosage: LOWEST DOSE, I THINK 10 MG ONCE DAILY PO
     Route: 048

REACTIONS (7)
  - ABDOMINAL PAIN UPPER [None]
  - APHASIA [None]
  - DISORIENTATION [None]
  - DRUG INTERACTION [None]
  - DYSPNOEA [None]
  - HEADACHE [None]
  - RESPIRATION ABNORMAL [None]
